FAERS Safety Report 5252037-0 (Version None)
Quarter: 2007Q1

REPORT INFORMATION
  Report Type: 
  Country: None (occurrence: None)
  Receive Date: 20070223
  Receipt Date: 20070212
  Transmission Date: 20070707
  Serious: Yes (Death)
  Sender: FDA-Public Use
  Company Number: 236511

PATIENT
  Age: 84 Year
  Sex: Female

DRUGS (12)
  1. RANIBIZUMAB (RANIBIZUMAB) PWDR + SOLVENT, INJECTION SOLN [Suspect]
     Indication: MACULAR DEGENERATION
     Dates: start: 20060314
  2. ATROVENT [Concomitant]
  3. AZMACORT [Concomitant]
  4. LEBATOLOL (UNK INGREDIENTS) (GENERIC COMPONENT(S) NOT KNOWN) [Concomitant]
  5. CLONIDINE [Concomitant]
  6. DIGOXIN [Concomitant]
  7. NORVASC [Concomitant]
  8. FUROSEMIDE [Concomitant]
  9. POTASSIUM (POTASSIUM NOS) [Concomitant]
  10. WARFARIN SODIUM [Concomitant]
  11. BENICAL (CHLORPHENIRAMINE MALEATE, DEXTROMETHORPHAN HYDROBROMIDE, PSEU [Concomitant]
  12. ALBUTEROL (ALBUTEROL/ALBUTEROL SULFATE) [Concomitant]

REACTIONS (1)
  - DEATH [None]
